FAERS Safety Report 9101220 (Version 3)
Quarter: 2013Q1

REPORT INFORMATION
  Report Type: Report from Study
  Country: PL (occurrence: PL)
  Receive Date: 20130218
  Receipt Date: 20130311
  Transmission Date: 20140127
  Serious: Yes (Other)
  Sender: FDA-Public Use
  Company Number: PL-ROCHE-1025999

PATIENT
  Age: 64 Year
  Sex: Female
  Weight: 91.5 kg

DRUGS (3)
  1. VEMURAFENIB [Suspect]
     Indication: MALIGNANT MELANOMA
     Dosage: DATE OF LAST DOSE PRIOR TO SAE ON 23/JAN/2012
     Route: 048
     Dates: start: 20111102
  2. VEMURAFENIB [Suspect]
     Dosage: LAST DOSE PRIOR TO SAE 21/JAN/2013
     Route: 048
     Dates: start: 20120131
  3. KETONAL FORTE [Concomitant]
     Route: 065
     Dates: start: 20120904

REACTIONS (3)
  - Acanthosis [Recovered/Resolved]
  - Keratoacanthoma [Recovered/Resolved]
  - Lentigo [Recovered/Resolved]
